FAERS Safety Report 8178030-6 (Version None)
Quarter: 2012Q1

REPORT INFORMATION
  Report Type: 
  Country: None (occurrence: None)
  Receive Date: 20120126
  Receipt Date: 20111012
  Transmission Date: 20120608
  Serious: No
  Sender: FDA-Public Use
  Company Number: PHEH2011US06866

PATIENT
  Age: 18 Year
  Sex: Male
  Weight: 68 kg

DRUGS (5)
  1. DEPAKOTE [Concomitant]
  2. VERSED [Concomitant]
  3. AFINITOR [Suspect]
     Indication: BRAIN NEOPLASM BENIGN
     Dosage: 5 MG DAILY, ORAL
     Route: 048
     Dates: start: 20110813
  4. CELONTIN [Concomitant]
  5. PRILOSEC [Concomitant]

REACTIONS (2)
  - STOMATITIS [None]
  - DRUG LEVEL DECREASED [None]
